FAERS Safety Report 7106315-0 (Version None)
Quarter: 2010Q4

REPORT INFORMATION
  Report Type: 
  Country: None (occurrence: None)
  Receive Date: 20101116
  Receipt Date: 20101109
  Transmission Date: 20110411
  Serious: Yes (Other)
  Sender: FDA-Public Use
  Company Number: US-PFIZER INC-2010146029

PATIENT
  Sex: Female
  Weight: 39.9 kg

DRUGS (4)
  1. PROTONIX [Suspect]
     Indication: GASTROOESOPHAGEAL REFLUX DISEASE
     Route: 048
     Dates: start: 20101001, end: 20101009
  2. COUMADIN [Suspect]
     Dosage: 1.25 MG EXCEPT MONDAYS AND FRIDAYS WHEN SHE TOOK 2.5 MG
  3. TOPROL-XL [Concomitant]
     Dosage: UNK
  4. LANOXIN [Concomitant]
     Dosage: UNK

REACTIONS (3)
  - BLOOD PRESSURE INCREASED [None]
  - BLOOD URINE PRESENT [None]
  - INTERNATIONAL NORMALISED RATIO INCREASED [None]
